FAERS Safety Report 5330439-1 (Version None)
Quarter: 2007Q2

REPORT INFORMATION
  Report Type: 
  Country: None (occurrence: None)
  Receive Date: 20070521
  Receipt Date: 20070509
  Transmission Date: 20071010
  Serious: Yes (Other)
  Sender: FDA-Public Use
  Company Number: US-PFIZER INC-2007038101

PATIENT
  Sex: Female
  Weight: 59.1 kg

DRUGS (6)
  1. CHANTIX [Suspect]
     Indication: EX-SMOKER
  2. ORTHO TRI-CYCLEN [Concomitant]
  3. ADDERALL 10 [Concomitant]
  4. CELEXA [Concomitant]
  5. LORAZEPAM [Concomitant]
  6. OMEPRAZOLE [Concomitant]

REACTIONS (4)
  - FALL [None]
  - FATIGUE [None]
  - LOSS OF CONSCIOUSNESS [None]
  - NAUSEA [None]
